FAERS Safety Report 7237799-5 (Version None)
Quarter: 2011Q1

REPORT INFORMATION
  Report Type: 
  Country: None (occurrence: None)
  Receive Date: 20110121
  Receipt Date: 20110112
  Transmission Date: 20110831
  Serious: Yes (Other)
  Sender: FDA-Public Use
  Company Number: GB-JNJFOC-20101000513

PATIENT
  Age: 43 Year
  Sex: Male

DRUGS (13)
  1. BISPHOSPHONATES [Concomitant]
  2. PREDNISOLONE [Concomitant]
  3. OXYBUTYNIN [Concomitant]
  4. MINOCYCLINE HCL [Concomitant]
  5. OXYCONTIN [Concomitant]
  6. REMICADE [Suspect]
     Route: 042
  7. METHOTREXATE [Concomitant]
     Indication: PYODERMA GANGRENOSUM
  8. MINOCYCLINE HCL [Concomitant]
     Indication: PYODERMA GANGRENOSUM
  9. FOLIC ACID [Concomitant]
  10. CALCIUM [Concomitant]
  11. REMICADE [Suspect]
     Indication: PYODERMA GANGRENOSUM
     Route: 042
  12. PREDNISOLONE [Concomitant]
     Indication: PYODERMA GANGRENOSUM
  13. PREDNISOLONE [Concomitant]

REACTIONS (3)
  - LETHARGY [None]
  - NON-CARDIAC CHEST PAIN [None]
  - OFF LABEL USE [None]
